FAERS Safety Report 13227808 (Version 1)
Quarter: 2017Q1

REPORT INFORMATION
  Report Type: Spontaneous
  Country: FR (occurrence: FR)
  Receive Date: 20170213
  Receipt Date: 20170213
  Transmission Date: 20170428
  Serious: Yes (Hospitalization)
  Sender: FDA-Public Use
  Company Number: FR-CELGENEUS-FRA-2017020589

PATIENT
  Sex: Male

DRUGS (5)
  1. OTEZLA [Suspect]
     Active Substance: APREMILAST
     Dosage: 60 MILLIGRAM
     Route: 048
  2. OTEZLA [Suspect]
     Active Substance: APREMILAST
     Indication: PSORIATIC ARTHROPATHY
     Dosage: 60 MILLIGRAM
     Route: 048
     Dates: start: 20161121
  3. OTEZLA [Suspect]
     Active Substance: APREMILAST
     Dosage: DOSE WAS REDUCED TO HALF OF 30 MG TABLET TWICE DAILY
     Route: 048
     Dates: end: 20170109
  4. OTEZLA [Suspect]
     Active Substance: APREMILAST
     Dosage: DOSE WAS REDUCED TO HALF OF 30 MG TABLET IN THE MORNING AND A TABLET OF 30 MG IN THE EVENING
     Route: 048
  5. PROCORALAN [Concomitant]
     Active Substance: IVABRADINE
     Indication: PRODUCT USED FOR UNKNOWN INDICATION
     Route: 065

REACTIONS (4)
  - Insomnia [Unknown]
  - Fatigue [Unknown]
  - Blister [Unknown]
  - Heart rate increased [Unknown]
